FAERS Safety Report 16011380 (Version 1)
Quarter: 2019Q1

REPORT INFORMATION
  Report Type: Spontaneous
  Country: CN (occurrence: CN)
  Receive Date: 20190227
  Receipt Date: 20190227
  Transmission Date: 20190418
  Serious: Yes (Other)
  Sender: FDA-Public Use
  Company Number: CN-BAXTER-2019BAX003845

PATIENT
  Age: 67 Year
  Sex: Male
  Weight: 56 kg

DRUGS (5)
  1. PIRARUBICIN HYDROCHLORIDE [Suspect]
     Active Substance: PIRARUBICIN HYDROCHLORIDE
     Indication: NEOPLASM
     Route: 041
     Dates: start: 20190121, end: 20190122
  2. GLUCOSE [Suspect]
     Active Substance: DEXTROSE
     Dosage: WITH CYCLOPHOSPHAMIDE 1.2G
     Route: 041
     Dates: start: 20190121, end: 20190122
  3. GLUCOSE [Suspect]
     Active Substance: DEXTROSE
     Indication: MEDICATION DILUTION
     Dosage: WITH PIRARUBICIN 80MG
     Route: 041
     Dates: start: 20190121, end: 20190122
  4. MEROPENEM. [Concomitant]
     Active Substance: MEROPENEM
     Indication: ANTI-INFECTIVE THERAPY
     Route: 065
  5. ENDOXAN [Suspect]
     Active Substance: CYCLOPHOSPHAMIDE
     Indication: NEOPLASM
     Route: 041
     Dates: start: 20190121, end: 20190122

REACTIONS (6)
  - Face oedema [Recovering/Resolving]
  - Peripheral swelling [Recovering/Resolving]
  - Hyperpyrexia [Recovering/Resolving]
  - Chills [Recovering/Resolving]
  - Oedema [Recovering/Resolving]
  - Bone marrow failure [Recovering/Resolving]

NARRATIVE: CASE EVENT DATE: 20190125
